FAERS Safety Report 6313173-0 (Version None)
Quarter: 2009Q3

REPORT INFORMATION
  Report Type: 
  Country: None (occurrence: None)
  Receive Date: 20090818
  Receipt Date: 20090810
  Transmission Date: 20100115
  Serious: Yes (Other)
  Sender: FDA-Public Use
  Company Number: PHEH2009US09123

PATIENT
  Sex: Female

DRUGS (1)
  1. RECLAST [Suspect]
     Dosage: UNK, UNK
     Dates: start: 20090807

REACTIONS (11)
  - ARTHRALGIA [None]
  - BACK PAIN [None]
  - BONE PAIN [None]
  - CHEST PAIN [None]
  - COUGH [None]
  - CYSTITIS [None]
  - HEADACHE [None]
  - MALAISE [None]
  - MUSCULOSKELETAL CHEST PAIN [None]
  - PYREXIA [None]
  - VOMITING [None]
